FAERS Safety Report 21026112 (Version 3)
Quarter: 2023Q2

REPORT INFORMATION
  Report Type: Spontaneous
  Country: US (occurrence: US)
  Receive Date: 20220630
  Receipt Date: 20230529
  Transmission Date: 20230721
  Serious: Yes (Other)
  Sender: FDA-Public Use
  Company Number: US-BIOGEN-2022BI01135567

PATIENT
  Age: 70 Year
  Sex: Female

DRUGS (1)
  1. TECFIDERA [Suspect]
     Active Substance: DIMETHYL FUMARATE
     Indication: Product used for unknown indication
     Route: 050

REACTIONS (6)
  - Multiple fractures [Unknown]
  - Wrist fracture [Unknown]
  - Contusion [Unknown]
  - Fall [Recovered/Resolved]
  - Product dose omission in error [Unknown]
  - Balance disorder [Unknown]

NARRATIVE: CASE EVENT DATE: 20220617
